FAERS Safety Report 5242189-0 (Version None)
Quarter: 2007Q1

REPORT INFORMATION
  Report Type: 
  Country: None (occurrence: None)
  Receive Date: 20070213
  Receipt Date: 20070202
  Transmission Date: 20070707
  Serious: Yes (Other)
  Sender: FDA-Public Use
  Company Number: THQ2007A00090

PATIENT
  Age: 36 Year
  Sex: Female

DRUGS (2)
  1. LEUPROLIDE ACETATE [Suspect]
     Indication: ENDOMETRIOSIS
  2. TIBOLONE [Concomitant]

REACTIONS (7)
  - ARTHROPATHY [None]
  - CONDITION AGGRAVATED [None]
  - CONJUNCTIVAL HAEMORRHAGE [None]
  - HYPOTRICHOSIS [None]
  - JOINT DISLOCATION [None]
  - LETHARGY [None]
  - PAIN OF SKIN [None]
